FAERS Safety Report 16724305 (Version 1)
Quarter: 2019Q4

REPORT INFORMATION
  Report Type: Spontaneous
  Country: US (occurrence: US)
  Receive Date: 20190820
  Receipt Date: 20190820
  Transmission Date: 20200122
  Serious: Yes (Hospitalization)
  Sender: FDA-Public Use
  Company Number: None

PATIENT
  Sex: Female

DRUGS (6)
  1. OMEPRAZOLE. [Concomitant]
     Active Substance: OMEPRAZOLE
  2. LORAZEPAM, METOCLOPRAM [Concomitant]
  3. CAPECITABINE. [Suspect]
     Active Substance: CAPECITABINE
     Indication: OVARIAN CANCER
     Dosage: ?          OTHER FREQUENCY:BID DAYS 1-14;?
     Route: 048
     Dates: start: 20190731
  4. GABAPENTIN, IBUPROFEN [Concomitant]
  5. CAPECITABINE. [Suspect]
     Active Substance: CAPECITABINE
     Indication: OVARIAN CANCER
     Dosage: ?          OTHER FREQUENCY:BID DAYS 1-14;?
     Route: 048
     Dates: start: 20190731
  6. AMLODIPINE, BUPRENORPHIN [Concomitant]

REACTIONS (1)
  - Dyspnoea [None]
